FAERS Safety Report 7374600-3 (Version None)
Quarter: 2011Q1

REPORT INFORMATION
  Report Type: 
  Country: None (occurrence: None)
  Receive Date: 20110325
  Receipt Date: 20100430
  Transmission Date: 20110831
  Serious: No
  Sender: FDA-Public Use
  Company Number: US-MYLANLABS-2010S1006947

PATIENT
  Age: 68 Year
  Sex: Female

DRUGS (10)
  1. ASKINA DERM FILM DRESSING [Suspect]
     Route: 062
  2. ZOLOFT [Concomitant]
  3. LISINOPRIL [Concomitant]
  4. COREG [Concomitant]
  5. FENTANYL-100 [Suspect]
     Indication: NECK PAIN
     Dosage: CHANGES PATCHES Q 72 HOURS
     Route: 062
     Dates: start: 20090901
  6. FENTANYL-100 [Suspect]
     Dosage: CHANGES PATCHES Q 72 HOURS
     Route: 062
     Dates: start: 20090901
  7. FENTANYL-100 [Suspect]
     Indication: BACK PAIN
     Dosage: CHANGES PATCHES Q 72 HOURS
     Route: 062
     Dates: start: 20090901
  8. FENTANYL-100 [Suspect]
     Dosage: CHANGES PATCHES Q 72 HOURS
     Route: 062
     Dates: start: 20090901
  9. MILK OF MAGNESIA TAB [Concomitant]
  10. ASCORBIC ACID [Concomitant]

REACTIONS (4)
  - DRUG EFFECT INCREASED [None]
  - DISTURBANCE IN ATTENTION [None]
  - DIZZINESS [None]
  - FEELING ABNORMAL [None]
